FAERS Safety Report 8822435 (Version 3)
Quarter: 2012Q4

REPORT INFORMATION
  Report Type: 
  Country: US (occurrence: US)
  Receive Date: 20121003
  Receipt Date: 20121025
  Transmission Date: 20130627
  Serious: Yes (Death)
  Sender: FDA-Public Use
  Company Number: PHEH2012US019175

PATIENT
  Sex: Female

DRUGS (11)
  1. ZOMETA [Suspect]
     Indication: MULTIPLE MYELOMA
     Dosage: 4 mg /5mL
     Route: 042
     Dates: start: 201110
  2. ALENDRONATE SODIUM [Concomitant]
  3. MELOXICAM [Concomitant]
  4. LISINOPRIL [Concomitant]
  5. CITALOPRAM [Concomitant]
  6. DEXAMETHASON [Concomitant]
  7. PANTOPRAZOLE [Concomitant]
  8. LYRICA [Concomitant]
  9. CARBIDOPA W/LEVODOPA [Concomitant]
  10. METOPROLOL [Concomitant]
  11. HYDROCODONE W/ACETAMINOPHEN [Concomitant]

REACTIONS (1)
  - Death [Fatal]
